FAERS Safety Report 8287229-X (Version None)
Quarter: 2012Q2

REPORT INFORMATION
  Report Type: 
  Country: None (occurrence: None)
  Receive Date: 20120416
  Receipt Date: 20120402
  Transmission Date: 20120825
  Serious: Yes (Hospitalization)
  Sender: FDA-Public Use
  Company Number: DE-RANBAXY-2012US-52422

PATIENT

DRUGS (12)
  1. CODEINE SULFATE [Concomitant]
     Indication: PRODUCT USED FOR UNKNOWN INDICATION
     Dosage: UP TO 180MG/DAY (GIVEN AS COMBINATION PREP WITH ACETAMINOPHEN)
     Route: 065
     Dates: start: 20111024, end: 20111030
  2. BUPIVACAINE HCL [Concomitant]
     Indication: PRODUCT USED FOR UNKNOWN INDICATION
     Dosage: UNK
     Route: 008
     Dates: start: 20111001
  3. ACETAMINOPHEN [Suspect]
     Indication: ANALGESIC THERAPY
     Dosage: UPTO 5G/DAY FOR THE FIRST FEW DAYS THEN 3-4 GRAM PER DAY
     Route: 065
     Dates: start: 20111023, end: 20111114
  4. OXAZEPAM [Concomitant]
     Indication: INSOMNIA
     Dosage: 25 MG, QD
     Route: 065
     Dates: start: 20111001
  5. PANTOPRAZOLE [Suspect]
     Indication: PROPHYLAXIS AGAINST GASTROINTESTINAL ULCER
     Dosage: 40 MG, 1 IN 1 DAY
     Route: 065
     Dates: start: 20101001
  6. OXYCODONE HCL [Concomitant]
     Indication: PRODUCT USED FOR UNKNOWN INDICATION
     Dosage: UP TO 50 MG/DAY
     Route: 065
  7. ARTHROTEC [Suspect]
     Indication: ANALGESIC THERAPY
     Dosage: UPTO 100 TO 150MG/DAY
     Route: 065
     Dates: start: 20111111
  8. ROPIVACAINE HYDROCHLORIDE [Concomitant]
     Indication: PRODUCT USED FOR UNKNOWN INDICATION
     Dosage: UNK
     Route: 008
     Dates: start: 20111001
  9. MUCOMYST [Concomitant]
     Indication: SALIVARY HYPERSECRETION
     Dosage: 200 MG, TID
     Route: 048
     Dates: start: 20110101
  10. ZOPICLONE [Concomitant]
     Indication: INSOMNIA
     Dosage: 5-7.5 MG/DAY
     Route: 065
     Dates: start: 20111001
  11. LACTULOSE [Concomitant]
     Indication: PRODUCT USED FOR UNKNOWN INDICATION
     Dosage: 15 MG, BID
     Route: 065
  12. HALOPERIDOL [Concomitant]
     Indication: PRODUCT USED FOR UNKNOWN INDICATION
     Dosage: 1 MG, QD (IN THE EVENING)
     Route: 065
     Dates: end: 20111114

REACTIONS (9)
  - FAECES DISCOLOURED [None]
  - CERVICAL VERTEBRAL FRACTURE [None]
  - HEPATIC STEATOSIS [None]
  - FALL [None]
  - HEPATOTOXICITY [None]
  - CHOLESTASIS [None]
  - TRAUMATIC FRACTURE [None]
  - CLAVICLE FRACTURE [None]
  - CHROMATURIA [None]
